FAERS Safety Report 4690936-9 (Version None)
Quarter: 2005Q2

REPORT INFORMATION
  Report Type: 
  Country: None (occurrence: None)
  Receive Date: 20050614
  Receipt Date: 20050614
  Transmission Date: 20051028
  Serious: No
  Sender: FDA-Public Use
  Company Number: None

PATIENT
  Age: 56 Year
  Sex: Female

DRUGS (2)
  1. CITALOPRAM HBR 2 MG MFC  CIPLA(WATSON) THEN MEDCO HEAL;TH [Suspect]
     Indication: MAJOR DEPRESSION
     Dosage: ONE BID PO
     Route: 048
     Dates: start: 20050117, end: 20050502
  2. ESKALITH [Concomitant]

REACTIONS (2)
  - MOOD ALTERED [None]
  - PHARMACEUTICAL PRODUCT COMPLAINT [None]
